FAERS Safety Report 8839872 (Version 3)
Quarter: 2013Q2

REPORT INFORMATION
  Report Type: Spontaneous
  Country: IT (occurrence: None)
  Receive Date: 20121011
  Receipt Date: 20130625
  Transmission Date: 20140414
  Serious: Yes (Life-Threatening, Hospitalization)
  Sender: FDA-Public Use
  Company Number: 2012-0989

PATIENT
  Age: 73 Year
  Sex: Female
  Weight: 60 kg

DRUGS (19)
  1. CARFILZOMIB [Suspect]
     Indication: PLASMA CELL MYELOMA
     Dosage: (30 MG, DAYS 1, 2)
     Route: 042
     Dates: start: 20120703, end: 20120704
  2. SOLDESAM (DEXAMETHASONE SODIIUM PHOSPHATE) [Concomitant]
  3. DIBASE (COLECALCIFEROL) [Concomitant]
  4. OSSEOR (STRONTIUM RANELATE) [Concomitant]
  5. LAMPIDEX (LANSOPRAZOLE) [Concomitant]
  6. BACTRIM (SULFAMETHOXAZOLE) [Concomitant]
  7. ENAPREN (ENALAPRIL MALEATE) [Concomitant]
  8. GAVISCON (SODIUIM BICARBONATE) [Concomitant]
  9. PANCREX (PANCREATIN) [Concomitant]
  10. ARANESP (DARBEPOETIN ALFA) [Concomitant]
  11. DEXAMETHASONE (DEXAMETHASONE) [Concomitant]
  12. ACICLOVIR (ACICLOVIR) (ACICLOVIR) [Concomitant]
  13. GRANULOKINE (FILGRASTIM) (FILGRASTIM) [Concomitant]
  14. COUMADIN (WARFARIN SODIUM) (WARFARIN SODIUM) [Concomitant]
  15. DILATREND (CARVEDILOL) (CARVEDILOL) [Concomitant]
  16. IMODIUM (LOPERAMIDE HYDROCHLORIDE) (LOPERAMIDE HYDROCHLORIDE) [Concomitant]
  17. LEVOXACIN (LEVOFLOXACIN) (LEVOFLOXACIN) [Concomitant]
  18. ROCEFIN (CEFTRIAXONE SODIUM) (CEFTRIAXONE SODIUM) [Concomitant]
  19. LUCEN (ESOMEPRAZOLE MAGNESIUM) (ESOMEPRAZOLE MAGNESIUM) [Concomitant]

REACTIONS (5)
  - Bronchopneumonia [None]
  - Pulmonary embolism [None]
  - Tachycardia [None]
  - Apparent life threatening event [None]
  - Fluid overload [None]
